FAERS Safety Report 12242439 (Version 2)
Quarter: 2016Q2

REPORT INFORMATION
  Report Type: Report from Study
  Country: BR (occurrence: BR)
  Receive Date: 20160406
  Receipt Date: 20160516
  Transmission Date: 20160815
  Serious: Yes (Hospitalization, Other)
  Sender: FDA-Public Use
  Company Number: PHHY2015BR124187

PATIENT
  Age: 60 Year
  Sex: Female
  Weight: 77 kg

DRUGS (1)
  1. GLIVEC [Suspect]
     Active Substance: IMATINIB MESYLATE
     Indication: CHRONIC MYELOID LEUKAEMIA
     Dosage: 400 MG, QD
     Route: 048
     Dates: start: 201010

REACTIONS (18)
  - Thermal burn [Unknown]
  - Generalised erythema [Unknown]
  - Pruritus generalised [Unknown]
  - Increased bronchial secretion [Unknown]
  - Rash pruritic [Unknown]
  - Cough [Unknown]
  - Rash macular [Unknown]
  - Asthma [Unknown]
  - Bronchitis [Unknown]
  - Fatigue [Unknown]
  - Bone marrow disorder [Unknown]
  - Wheezing [Unknown]
  - Intervertebral disc protrusion [Recovering/Resolving]
  - Abasia [Unknown]
  - Muscle spasms [Unknown]
  - Contusion [Unknown]
  - Pneumonia [Unknown]
  - Suffocation feeling [Unknown]

NARRATIVE: CASE EVENT DATE: 201409
